FAERS Safety Report 23546314 (Version 1)
Quarter: 2024Q1

REPORT INFORMATION
  Report Type: Spontaneous
  Country: US (occurrence: US)
  Receive Date: 20240220
  Receipt Date: 20240220
  Transmission Date: 20240410
  Serious: No
  Sender: FDA-Public Use
  Company Number: US-009507513-2401USA013357

PATIENT
  Age: 73 Year
  Sex: Male

DRUGS (9)
  1. JANUVIA [Suspect]
     Active Substance: SITAGLIPTIN PHOSPHATE
     Indication: Type 2 diabetes mellitus
     Dosage: 50 MILLIGRAM, QD
     Route: 048
     Dates: start: 2023, end: 20240117
  2. ZOLPIDEM [Concomitant]
     Active Substance: ZOLPIDEM TARTRATE
  3. OXYCODONE HYDROCHLORIDE [Concomitant]
     Active Substance: OXYCODONE HYDROCHLORIDE
  4. LOVASTATIN [Concomitant]
     Active Substance: LOVASTATIN
  5. LOSARTAN [Concomitant]
     Active Substance: LOSARTAN
  6. GLIMEPIRIDE [Concomitant]
     Active Substance: GLIMEPIRIDE
  7. GABAPENTIN [Concomitant]
     Active Substance: GABAPENTIN
  8. FOLIC ACID [Concomitant]
     Active Substance: FOLIC ACID
  9. ALLOPURINOL [Concomitant]
     Active Substance: ALLOPURINOL

REACTIONS (4)
  - Nervousness [Not Recovered/Not Resolved]
  - Disturbance in attention [Not Recovered/Not Resolved]
  - Product dose omission issue [Unknown]
  - Economic problem [Unknown]

NARRATIVE: CASE EVENT DATE: 20240101
